FAERS Safety Report 8227486-9 (Version None)
Quarter: 2012Q1

REPORT INFORMATION
  Report Type: 
  Country: None (occurrence: None)
  Receive Date: 20120322
  Receipt Date: 20120319
  Transmission Date: 20120608
  Serious: Yes (Disabling, Other)
  Sender: FDA-Public Use
  Company Number: PHFR2012GB001308

PATIENT
  Age: 68 Year
  Sex: Female
  Weight: 65 kg

DRUGS (9)
  1. AMOROLFINE [Concomitant]
     Dates: start: 20120203, end: 20120204
  2. IBUPROFEN [Concomitant]
     Dates: start: 20111213, end: 20120110
  3. GLUCOSAMINE [Concomitant]
  4. IBUPROFEN [Concomitant]
     Dates: start: 20111101, end: 20111129
  5. ACETAMINOPHEN [Concomitant]
     Dates: start: 20111101, end: 20111113
  6. ACETAMINOPHEN [Concomitant]
     Dates: start: 20120210
  7. ACETAMINOPHEN [Concomitant]
     Dates: start: 20111213, end: 20111225
  8. ACETAMINOPHEN [Concomitant]
     Dosage: UNK
     Dates: start: 20120123, end: 20120204
  9. TERBINAFINE HCL [Suspect]
     Indication: ONYCHOMYCOSIS
     Dosage: 250 MG, UNK
     Dates: start: 20111102

REACTIONS (3)
  - MEMORY IMPAIRMENT [None]
  - COGNITIVE DISORDER [None]
  - DYSGRAPHIA [None]
